FAERS Safety Report 6519526-X (Version None)
Quarter: 2009Q4

REPORT INFORMATION
  Report Type: 
  Country: None (occurrence: None)
  Receive Date: 20091228
  Receipt Date: 20091215
  Transmission Date: 20100525
  Serious: Yes (Life-Threatening, Disabling)
  Sender: FDA-Public Use
  Company Number: JP-PFIZER INC-2009271442

PATIENT
  Age: 40 Year
  Sex: Male

DRUGS (11)
  1. SOMAVERT [Suspect]
     Indication: ACROMEGALY
     Dosage: 10 MG, TWICE A WEEK
     Route: 058
     Dates: start: 20090301, end: 20090601
  2. SANDOSTATIN LAR [Concomitant]
     Dosage: 30 MG, MONTHLY
     Dates: start: 20080901, end: 20090903
  3. RISEDRONATE SODIUM HYDRATE [Concomitant]
     Route: 048
  4. CORTRIL [Concomitant]
     Route: 048
  5. THYRADIN [Concomitant]
     Route: 048
  6. MOBIC [Concomitant]
     Route: 048
  7. MYONAL [Concomitant]
     Route: 048
  8. GLUTAMINE [Concomitant]
     Route: 048
  9. MYSLEE [Concomitant]
     Route: 048
  10. FAMOTIDINE [Concomitant]
     Route: 048
  11. TESTOSTERONE ENANTATE [Concomitant]
     Indication: ACROMEGALY
     Dosage: 250 MG, ONCE A MONTH
     Route: 030
     Dates: start: 20070624

REACTIONS (2)
  - DECREASED APPETITE [None]
  - RESPIRATORY DEPRESSION [None]
